FAERS Safety Report 6739381-2 (Version None)
Quarter: 2010Q2

REPORT INFORMATION
  Report Type: 
  Country: None (occurrence: None)
  Receive Date: 20100525
  Receipt Date: 20100518
  Transmission Date: 20101027
  Serious: Yes (Other)
  Sender: FDA-Public Use
  Company Number: US-BAYER-201022859NA

PATIENT
  Age: 39 Year
  Sex: Female

DRUGS (1)
  1. YASMIN [Suspect]
     Indication: DRUG USE FOR UNKNOWN INDICATION
     Route: 048
     Dates: end: 20100401

REACTIONS (4)
  - GASTROINTESTINAL DISORDER [None]
  - MENSTRUATION DELAYED [None]
  - MENSTRUATION IRREGULAR [None]
  - ULCER [None]
